FAERS Safety Report 9101334 (Version 2)
Quarter: 2013Q1

REPORT INFORMATION
  Report Type: Spontaneous
  Country: GB (occurrence: GB)
  Receive Date: 20130218
  Receipt Date: 20130225
  Transmission Date: 20140127
  Serious: Yes (Other)
  Sender: FDA-Public Use
  Company Number: PHHY2013GB015091

PATIENT
  Age: 78 Year
  Sex: Male
  Weight: 95.34 kg

DRUGS (15)
  1. METFORMIN [Suspect]
     Indication: TYPE 2 DIABETES MELLITUS
     Dosage: 500 MG, DAILY
     Dates: start: 20121010
  2. METFORMIN [Suspect]
     Dosage: 2 DF, DAILY
  3. METFORMIN [Suspect]
     Dosage: 3 DF, DAILY
  4. METFORMIN [Suspect]
     Dosage: 1 DF, DAILY
  5. METFORMIN [Suspect]
     Dosage: 2 DF, DAILY
  6. METFORMIN [Suspect]
     Dosage: 3 DF, DAILY
  7. METFORMIN [Suspect]
     Dosage: 2 DF, DAILY
  8. METFORMIN [Suspect]
     Dosage: 1 DF, DAILY
  9. PROPRANOLOL [Concomitant]
     Dosage: 20 MG, BID
  10. OMEPRAZOLE [Concomitant]
     Indication: PROPHYLAXIS AGAINST GASTROINTESTINAL ULCER
     Dosage: 40 MG, QD
  11. RAMIPRIL [Concomitant]
     Dosage: 2.5 MG, QD
     Route: 048
     Dates: start: 20120812
  12. SIMVASTATIN [Concomitant]
     Dosage: 20 MG, QD
     Route: 048
     Dates: start: 20021112
  13. FELODIPINE [Concomitant]
     Dosage: 5 MG, QD
     Route: 048
     Dates: start: 20030211
  14. CO-CODAMOL [Concomitant]
     Dosage: 15/500 PRN
     Route: 065
  15. FERROUS FUMARATE [Concomitant]
     Dosage: 305 MG, QD

REACTIONS (2)
  - Haemorrhage [Recovered/Resolved]
  - Anorectal discomfort [Recovered/Resolved]
